FAERS Safety Report 5702459-6 (Version None)
Quarter: 2008Q2

REPORT INFORMATION
  Report Type: 
  Country: None (occurrence: None)
  Receive Date: 20080408
  Receipt Date: 20080325
  Transmission Date: 20081010
  Serious: Yes (Other)
  Sender: FDA-Public Use
  Company Number: 2008000309

PATIENT
  Age: 82 Year
  Sex: Male

DRUGS (13)
  1. ERLOTINIB (ERLOTINIB HCL) (TABLET) (ERLOTINIB HCL) [Suspect]
     Indication: LUNG ADENOCARCINOMA
     Dosage: 150 MG, QD, ORAL
     Route: 048
     Dates: start: 20080110, end: 20080131
  2. IRESSA [Suspect]
     Indication: LUNG ADENOCARCINOMA
     Dosage: ORAL
     Route: 048
     Dates: start: 20050101, end: 20080109
  3. EVIPROSTAT (EVIPROSTAT) [Concomitant]
  4. SENNOSIDE [Concomitant]
  5. NAIXAN (NAPROXEN SODIUM) [Concomitant]
  6. RIZE (CLOTIAZEPAM) [Concomitant]
  7. GASMOTIN (MOSAPRIDE CITRATE) [Concomitant]
  8. MAGNESIUM OXIDE (MAGNESIUM OXIDE) [Concomitant]
  9. RABEPRAZOLE SODIUM [Concomitant]
  10. NOVAMIN (PROCHLORPERAZINE) [Concomitant]
  11. CLARITIN [Concomitant]
  12. FLIVAS (NAFTOPIDIL) [Concomitant]
  13. MS CONTIN [Concomitant]

REACTIONS (2)
  - FOLLICULITIS [None]
  - PARONYCHIA [None]
